FAERS Safety Report 8920298 (Version 1)
Quarter: 2012Q4

REPORT INFORMATION
  Report Type: Report from Study
  Country: US (occurrence: US)
  Receive Date: 20121121
  Receipt Date: 20121121
  Transmission Date: 20130627
  Serious: Yes (Other)
  Sender: FDA-Public Use
  Company Number: US-ABBOTT-12P-163-1009336-00

PATIENT
  Age: 68 Year
  Sex: Female

DRUGS (9)
  1. HUMIRA [Suspect]
     Indication: RHEUMATOID ARTHRITIS
     Dates: start: 2009, end: 2010
  2. HUMIRA [Suspect]
     Dates: start: 2010, end: 2011
  3. HUMIRA [Suspect]
     Dates: start: 2011
  4. HUMIRA [Suspect]
     Dates: end: 201210
  5. WELLBUTRIN (GENERIC) SR [Concomitant]
     Indication: DEPRESSION
  6. SYNTHROID [Concomitant]
     Indication: PRODUCT USED FOR UNKNOWN INDICATION
  7. TRAMADOL HCL [Concomitant]
     Indication: PAIN
     Dosage: 2 Tablets at night
  8. MULTI-VITAMIN FOR WOMEN OVER 50 [Concomitant]
     Indication: PRODUCT USED FOR UNKNOWN INDICATION
  9. PREDNISONE [Concomitant]
     Indication: PRODUCT USED FOR UNKNOWN INDICATION
     Dosage: tapering dose

REACTIONS (9)
  - Device breakage [Not Recovered/Not Resolved]
  - Drug ineffective [Unknown]
  - Pain [Unknown]
  - Rash [Unknown]
  - Rash macular [Unknown]
  - Thermal burn [Unknown]
  - Eczema [Unknown]
  - Body height decreased [Unknown]
  - Skin disorder [Unknown]
